FAERS Safety Report 7754017-X (Version None)
Quarter: 2011Q3

REPORT INFORMATION
  Report Type: 
  Country: None (occurrence: None)
  Receive Date: 20110915
  Receipt Date: 20110906
  Transmission Date: 20111222
  Serious: Yes (Other)
  Sender: FDA-Public Use
  Company Number: PHHY2011JP80070

PATIENT
  Age: 84 Year
  Sex: Male

DRUGS (1)
  1. NEORAL [Suspect]
     Indication: PNEUMONIA
     Dosage: UNK UKN, UNK
     Route: 048

REACTIONS (1)
  - INAPPROPRIATE ANTIDIURETIC HORMONE SECRETION [None]
